FAERS Safety Report 16828389 (Version 1)
Quarter: 2019Q3

REPORT INFORMATION
  Report Type: Spontaneous
  Country: US (occurrence: US)
  Receive Date: 20190919
  Receipt Date: 20190919
  Transmission Date: 20191005
  Serious: No
  Sender: FDA-Public Use
  Company Number: US-SA-2019SA259269

PATIENT
  Age: 16 Year
  Sex: Female

DRUGS (1)
  1. ADMELOG [Suspect]
     Active Substance: INSULIN LISPRO
     Indication: TYPE 1 DIABETES MELLITUS
     Dosage: BREAKFAST- 1 UNIT FOR EVERY 7 CARBS
     Route: 065
     Dates: start: 20190426

REACTIONS (3)
  - Device operational issue [Unknown]
  - Injection site pain [Unknown]
  - Blood glucose increased [Unknown]
